FAERS Safety Report 7058192-4 (Version None)
Quarter: 2010Q4

REPORT INFORMATION
  Report Type: 
  Country: None (occurrence: None)
  Receive Date: 20101022
  Receipt Date: 20101014
  Transmission Date: 20110411
  Serious: Yes (Other)
  Sender: FDA-Public Use
  Company Number: TW-GENZYME-RENA-1000894

PATIENT

DRUGS (1)
  1. RENAGEL [Suspect]
     Indication: HYPERPHOSPHATAEMIA
     Dosage: UNK
     Route: 048

REACTIONS (1)
  - UPPER GASTROINTESTINAL HAEMORRHAGE [None]
